FAERS Safety Report 5444232-2 (Version None)
Quarter: 2007Q3

REPORT INFORMATION
  Report Type: 
  Country: None (occurrence: None)
  Receive Date: 20070906
  Receipt Date: 20070828
  Transmission Date: 20080115
  Serious: Yes (Hospitalization, Other)
  Sender: FDA-Public Use
  Company Number: US-AMGEN-US240840

PATIENT
  Sex: Female

DRUGS (11)
  1. ARANESP [Suspect]
     Indication: RENAL FAILURE CHRONIC
     Route: 058
  2. AMPHOTERICIN B [Concomitant]
  3. VORICONAZOLE [Concomitant]
  4. VANCOMYCIN [Concomitant]
  5. ATROVENT [Concomitant]
  6. INSULIN [Concomitant]
  7. METHYLPREDNISOLONE 16MG TAB [Concomitant]
  8. PRIMAXIN [Concomitant]
  9. HYDROMORPHONE HCL [Concomitant]
  10. PROTONIX [Concomitant]
  11. XOPENEX [Concomitant]

REACTIONS (2)
  - SEPTIC SHOCK [None]
  - THERAPEUTIC RESPONSE DECREASED [None]
